FAERS Safety Report 23618549 (Version 2)
Quarter: 2024Q1

REPORT INFORMATION
  Report Type: Spontaneous
  Country: US (occurrence: US)
  Receive Date: 20240311
  Receipt Date: 20240318
  Transmission Date: 20240409
  Serious: No
  Sender: FDA-Public Use
  Company Number: US-PFIZER INC-202400060211

PATIENT
  Age: 66 Year
  Sex: Female
  Weight: 65.77 kg

DRUGS (2)
  1. DESVENLAFAXINE [Suspect]
     Active Substance: DESVENLAFAXINE
     Indication: Fibromyalgia
     Dosage: UNK
     Dates: start: 202301
  2. DESVENLAFAXINE [Suspect]
     Active Substance: DESVENLAFAXINE
     Indication: Depression

REACTIONS (4)
  - Feeling abnormal [Not Recovered/Not Resolved]
  - Insomnia [Not Recovered/Not Resolved]
  - Depression [Not Recovered/Not Resolved]
  - Fibromyalgia [Not Recovered/Not Resolved]

NARRATIVE: CASE EVENT DATE: 20240101
